FAERS Safety Report 11628877 (Version 1)
Quarter: 2015Q4

REPORT INFORMATION
  Report Type: Spontaneous
  Country: AT (occurrence: AT)
  Receive Date: 20151014
  Receipt Date: 20151014
  Transmission Date: 20160304
  Serious: Yes (Hospitalization, Disabling, Other)
  Sender: FDA-Public Use
  Company Number: AT-GLAXOSMITHKLINE-AT2015GSK144012

PATIENT
  Age: 30 Year
  Sex: Female

DRUGS (7)
  1. ACEMIN [Concomitant]
     Active Substance: LISINOPRIL
     Dosage: 1 UNK, 1D
  2. LEVEBON [Concomitant]
     Dosage: 1 UNK, BID
  3. THROMBO ASS [Concomitant]
     Active Substance: ASPIRIN
     Dosage: 1 UNK, 1D
  4. PANTOLOC [Concomitant]
     Active Substance: PANTOPRAZOLE SODIUM
     Dosage: 1 UNK, 1D
  5. BENLYSTA [Suspect]
     Active Substance: BELIMUMAB
     Indication: SYSTEMIC LUPUS ERYTHEMATOSUS
     Dosage: 640 MG, Z
     Route: 042
     Dates: start: 20140324
  6. CELLSEPT [Concomitant]
     Dosage: 2 UNK, BID
  7. EFECTIN [Concomitant]
     Active Substance: VENLAFAXINE HYDROCHLORIDE
     Dosage: 1 UNK, 1D

REACTIONS (1)
  - Ischaemic cerebral infarction [Not Recovered/Not Resolved]

NARRATIVE: CASE EVENT DATE: 20150827
